FAERS Safety Report 6451927-0 (Version None)
Quarter: 2009Q4

REPORT INFORMATION
  Report Type: 
  Country: None (occurrence: None)
  Receive Date: 20091123
  Receipt Date: 20091110
  Transmission Date: 20100525
  Serious: Yes (Hospitalization)
  Sender: FDA-Public Use
  Company Number: FR-GENENTECH-287194

PATIENT
  Sex: Male

DRUGS (11)
  1. BLINDED BEVACIZUMAB [Suspect]
     Indication: NEOPLASM MALIGNANT
     Dosage: 550 MG, UNK
     Route: 065
     Dates: start: 20090616, end: 20090616
  2. OXALIPLATIN [Suspect]
     Indication: NEOPLASM MALIGNANT
     Dosage: 170 MG, UNK
     Route: 065
     Dates: start: 20090616, end: 20090616
  3. LEUCOVORIN CALCIUM [Suspect]
     Indication: NEOPLASM MALIGNANT
     Dosage: 800 MG, UNK
     Route: 065
     Dates: start: 20090616, end: 20090616
  4. FLUOROURACIL [Suspect]
     Indication: NEOPLASM MALIGNANT
     Dosage: 800 MG, UNK
     Route: 065
     Dates: start: 20090616, end: 20090616
  5. BLINDED STUDY DRUG [Suspect]
     Indication: PROPHYLAXIS
     Dosage: UNK
     Route: 065
     Dates: start: 20090616, end: 20091005
  6. TAZOCIN [Concomitant]
     Indication: DRUG USE FOR UNKNOWN INDICATION
     Dosage: UNK
     Dates: start: 20090619, end: 20090626
  7. COVERSYL [Concomitant]
     Indication: DRUG USE FOR UNKNOWN INDICATION
     Dosage: UNK
     Dates: start: 20090619
  8. GENTAMICIN [Concomitant]
     Indication: DRUG USE FOR UNKNOWN INDICATION
     Dosage: UNK
     Dates: start: 20090619, end: 20090621
  9. DOMPERIDONE [Concomitant]
     Indication: DRUG USE FOR UNKNOWN INDICATION
     Dosage: UNK
     Dates: start: 20090714
  10. AMLODIPINE [Concomitant]
     Indication: DRUG USE FOR UNKNOWN INDICATION
     Dosage: UNK
     Dates: start: 20090720
  11. SERTRALINE HCL [Concomitant]
     Indication: DRUG USE FOR UNKNOWN INDICATION
     Dosage: UNK
     Dates: start: 20090714

REACTIONS (3)
  - CELLULITIS [None]
  - PYREXIA [None]
  - SEPSIS [None]
